FAERS Safety Report 17505683 (Version 6)
Quarter: 2020Q3

REPORT INFORMATION
  Report Type: Spontaneous
  Country: US (occurrence: US)
  Receive Date: 20200305
  Receipt Date: 20200930
  Transmission Date: 20201102
  Serious: No
  Sender: FDA-Public Use
  Company Number: US-PFIZER INC-2020099846

PATIENT
  Age: 80 Year
  Sex: Female
  Weight: 83.01 kg

DRUGS (2)
  1. NORPACE [Suspect]
     Active Substance: DISOPYRAMIDE PHOSPHATE
     Dosage: 600 MG, DAILY (4, 150 MG A DAY; QUANTITY FOR 90 DAYS: 480)
  2. NORPACE [Suspect]
     Active Substance: DISOPYRAMIDE PHOSPHATE
     Dosage: 150 MG, 3X/DAY
     Route: 048

REACTIONS (4)
  - Confusional state [Unknown]
  - Product use issue [Unknown]
  - Abnormal behaviour [Unknown]
  - Off label use [Unknown]
